FAERS Safety Report 5739203-2 (Version None)
Quarter: 2008Q2

REPORT INFORMATION
  Report Type: 
  Country: None (occurrence: None)
  Receive Date: 20080515
  Receipt Date: 20080513
  Transmission Date: 20081010
  Serious: Yes (Hospitalization)
  Sender: FDA-Public Use
  Company Number: AU-BRISTOL-MYERS SQUIBB COMPANY-14189260

PATIENT
  Age: 47 Year
  Sex: Female

DRUGS (10)
  1. ABATACEPT [Suspect]
     Indication: SYSTEMIC LUPUS ERYTHEMATOSUS
     Dosage: 15MAY06 TO 16APR07 14 COURSES, 14MAY07-CONTINUED 13 COURSES
     Route: 042
     Dates: start: 20060515
  2. HYDROXYCHLOROQUINE SULFATE [Concomitant]
     Dates: start: 19990101
  3. RABEPRAZOLE SODIUM [Concomitant]
     Dates: start: 20040101
  4. AVAPRO [Concomitant]
     Dosage: 150/12.5
     Dates: start: 20070621
  5. SERETIDE [Concomitant]
     Indication: ASTHMA
     Dosage: 1 DOSAGE FORM = 2 PUFFS. 250/25
     Route: 055
     Dates: start: 20040101
  6. VENTOLIN [Concomitant]
     Indication: ASTHMA
     Route: 045
     Dates: start: 20010101
  7. ACETAMINOPHEN [Concomitant]
     Indication: HEADACHE
     Dosage: INITIATED 1981 AND 24-04-2006
     Route: 048
     Dates: start: 19810101
  8. ACETAMINOPHEN [Concomitant]
     Indication: ARTHRALGIA
     Dosage: INITIATED 1981 AND 24-04-2006
     Route: 048
     Dates: start: 19810101
  9. DHEA [Concomitant]
     Indication: PROPHYLAXIS
     Dosage: MON, WED, FRIDAY
     Route: 048
     Dates: start: 20080205
  10. DHEA [Concomitant]
     Indication: FATIGUE
     Dosage: MON, WED, FRIDAY
     Route: 048
     Dates: start: 20080205

REACTIONS (1)
  - GASTROENTERITIS [None]
